FAERS Safety Report 21992241 (Version 2)
Quarter: 2023Q2

REPORT INFORMATION
  Report Type: Spontaneous
  Country: US (occurrence: None)
  Receive Date: 20230214
  Receipt Date: 20230411
  Transmission Date: 20230721
  Serious: No
  Sender: FDA-Public Use
  Company Number: 2023A034157

PATIENT
  Sex: Male
  Weight: 64.9 kg

DRUGS (1)
  1. CALQUENCE [Suspect]
     Active Substance: ACALABRUTINIB
     Indication: Chronic lymphocytic leukaemia
     Route: 048
     Dates: start: 202209

REACTIONS (4)
  - White blood cell count abnormal [Unknown]
  - Pruritus [Not Recovered/Not Resolved]
  - Weight decreased [Not Recovered/Not Resolved]
  - Erythema [Not Recovered/Not Resolved]
